FAERS Safety Report 18044545 (Version 1)
Quarter: 2020Q3

REPORT INFORMATION
  Report Type: Spontaneous
  Country: US (occurrence: US)
  Receive Date: 20200720
  Receipt Date: 20200720
  Transmission Date: 20201103
  Serious: Yes (Death, Hospitalization, Other)
  Sender: FDA-Public Use
  Company Number: US-BIOGEN-2009BI032732

PATIENT
  Age: 42 Year
  Sex: Male
  Weight: 74.46 kg

DRUGS (2)
  1. TYSABRI [Suspect]
     Active Substance: NATALIZUMAB
     Indication: MULTIPLE SCLEROSIS
     Route: 042
     Dates: start: 20071129, end: 20091006
  2. TYSABRI [Suspect]
     Active Substance: NATALIZUMAB
     Dosage: FOR 2 YEARS
     Route: 042

REACTIONS (5)
  - Progressive multifocal leukoencephalopathy [Unknown]
  - Headache [Unknown]
  - Death [Fatal]
  - Pancytopenia [Unknown]
  - Immune reconstitution inflammatory syndrome [Unknown]

NARRATIVE: CASE EVENT DATE: 20091009
